FAERS Safety Report 6738431-7 (Version None)
Quarter: 2010Q2

REPORT INFORMATION
  Report Type: 
  Country: None (occurrence: None)
  Receive Date: 20100524
  Receipt Date: 20100518
  Transmission Date: 20101027
  Serious: Yes (Hospitalization)
  Sender: FDA-Public Use
  Company Number: US-CEPHALON-2010002852

PATIENT
  Age: 78 Year
  Sex: Female

DRUGS (3)
  1. TREANDA [Suspect]
     Indication: B-CELL LYMPHOMA
     Dates: start: 20100505
  2. RITUXAN [Concomitant]
  3. NEULASTA [Concomitant]

REACTIONS (1)
  - PULMONARY OEDEMA [None]
